FAERS Safety Report 13206858 (Version 1)
Quarter: 2017Q1

REPORT INFORMATION
  Report Type: Spontaneous
  Country: US (occurrence: US)
  Receive Date: 20170209
  Receipt Date: 20170209
  Transmission Date: 20170428
  Serious: No
  Sender: FDA-Public Use
  Company Number: US-SA-2016SA225979

PATIENT
  Age: 70 Year
  Sex: Female
  Weight: 52.16 kg

DRUGS (4)
  1. PENICILLIN [Concomitant]
     Active Substance: PENICILLIN
  2. TEA [Concomitant]
     Active Substance: TEA LEAF
  3. ALIROCUMAB PREFILLED PEN [Concomitant]
     Active Substance: ALIROCUMAB
     Indication: BLOOD CHOLESTEROL INCREASED
     Route: 065
  4. PRALUENT [Suspect]
     Active Substance: ALIROCUMAB
     Indication: BLOOD CHOLESTEROL INCREASED
     Route: 065

REACTIONS (1)
  - Therapeutic response unexpected [Unknown]
